FAERS Safety Report 9411876 (Version 1)
Quarter: 2013Q3

REPORT INFORMATION
  Report Type: Spontaneous
  Country: GB (occurrence: GB)
  Receive Date: 20130722
  Receipt Date: 20130722
  Transmission Date: 20140515
  Serious: Yes (Other)
  Sender: FDA-Public Use
  Company Number: PHFR2013GB004057

PATIENT
  Sex: 0

DRUGS (1)
  1. DESERILA [Suspect]
     Dosage: UNK

REACTIONS (1)
  - Pulmonary fibrosis [Unknown]
